FAERS Safety Report 10082245 (Version 6)
Quarter: 2019Q3

REPORT INFORMATION
  Report Type: Report from Study
  Country: US (occurrence: US)
  Receive Date: 20140416
  Receipt Date: 20190923
  Transmission Date: 20191004
  Serious: Yes (Death, Hospitalization, Other)
  Sender: FDA-Public Use
  Company Number: US-SA-2013SA120756

PATIENT
  Age: 57 Year
  Sex: Female

DRUGS (3)
  1. CARBAMAZEPINE. [Concomitant]
     Active Substance: CARBAMAZEPINE
     Indication: SEIZURE
  2. OXCARBAZEPINE. [Concomitant]
     Active Substance: OXCARBAZEPINE
     Indication: SEIZURE
  3. TERIFLUNOMIDE. [Suspect]
     Active Substance: TERIFLUNOMIDE
     Indication: MULTIPLE SCLEROSIS
     Dosage: 14 MG,QD
     Route: 048
     Dates: start: 20130807, end: 20140331

REACTIONS (8)
  - Hepatic failure [Fatal]
  - Confusional state [Unknown]
  - Decreased appetite [Unknown]
  - Dementia [Unknown]
  - Seizure [Unknown]
  - Renal failure [Unknown]
  - Disseminated intravascular coagulation [Unknown]
  - Cyanosis [Unknown]

NARRATIVE: CASE EVENT DATE: 20140322
